FAERS Safety Report 25885756 (Version 1)
Quarter: 2025Q4

REPORT INFORMATION
  Report Type: Spontaneous
  Country: BR (occurrence: BR)
  Receive Date: 20251006
  Receipt Date: 20251006
  Transmission Date: 20260118
  Serious: Yes (Hospitalization)
  Sender: NOVARTIS
  Company Number: BR-002147023-NVSC2025BR151924

PATIENT
  Age: 67 Year
  Sex: Male
  Weight: 85 kg

DRUGS (2)
  1. GLIVEC [Suspect]
     Active Substance: IMATINIB MESYLATE
     Indication: Chronic myeloid leukaemia
     Dosage: 1 DOSAGE FORM, QD (1 TABLET A DAY)
     Route: 065
     Dates: start: 2019
  2. ENALAPRIL [Concomitant]
     Active Substance: ENALAPRIL
     Indication: Product used for unknown indication
     Dosage: 1 DOSAGE FORM, QD (1 TABLET DAILY)
     Route: 065

REACTIONS (1)
  - Pyelonephritis [Unknown]

NARRATIVE: CASE EVENT DATE: 20250922
